FAERS Safety Report 18870851 (Version 1)
Quarter: 2021Q1

REPORT INFORMATION
  Report Type: Spontaneous
  Country: US (occurrence: US)
  Receive Date: 20210210
  Receipt Date: 20210210
  Transmission Date: 20210420
  Serious: Yes (Other)
  Sender: FDA-Public Use
  Company Number: US-HIKMA PHARMACEUTICALS USA INC.-US-H14001-21-00616

PATIENT
  Age: 91 Year
  Sex: Male

DRUGS (1)
  1. IPRATROPIUM BROMIDE. [Suspect]
     Active Substance: IPRATROPIUM BROMIDE
     Indication: PRODUCT USED FOR UNKNOWN INDICATION
     Dosage: UNKNOWN
     Route: 045

REACTIONS (5)
  - Pollakiuria [Unknown]
  - Dysuria [Recovered/Resolved]
  - Off label use [Unknown]
  - Urinary incontinence [Unknown]
  - Urinary retention [Unknown]

NARRATIVE: CASE EVENT DATE: 20210126
